FAERS Safety Report 10749728 (Version 1)
Quarter: 2015Q1

REPORT INFORMATION
  Report Type: Spontaneous
  Country: US (occurrence: US)
  Receive Date: 20150129
  Receipt Date: 20150129
  Transmission Date: 20150721
  Serious: Yes (Death)
  Sender: FDA-Public Use
  Company Number: 2014SP000050

PATIENT
  Age: 34 Year
  Sex: Male

DRUGS (14)
  1. LATUDA [Suspect]
     Active Substance: LURASIDONE HYDROCHLORIDE
     Route: 048
  2. RANOLAZINE [Suspect]
     Active Substance: RANOLAZINE
  3. VILAZODONE [Suspect]
     Active Substance: VILAZODONE
  4. TOPIRAMATE. [Suspect]
     Active Substance: TOPIRAMATE
  5. CLOPIDOGREL [Suspect]
     Active Substance: CLOPIDOGREL BISULFATE
  6. ACETAMINOPHEN W/HYDROCODONE [Suspect]
     Active Substance: ACETAMINOPHEN\HYDROCODONE
  7. SALICYLIC ACID. [Suspect]
     Active Substance: SALICYLIC ACID
  8. MILNACIPRAN [Suspect]
     Active Substance: MILNACIPRAN
  9. SIMVASTATIN. [Suspect]
     Active Substance: SIMVASTATIN
  10. HYDROXYZINE [Suspect]
     Active Substance: HYDROXYZINE\HYDROXYZINE HYDROCHLORIDE
  11. CARVEDILOL. [Suspect]
     Active Substance: CARVEDILOL
  12. PROPRANOLOL [Suspect]
     Active Substance: PROPRANOLOL\PROPRANOLOL HYDROCHLORIDE
  13. MIRTAZAPINE. [Suspect]
     Active Substance: MIRTAZAPINE
  14. ALPRAZOLAM. [Suspect]
     Active Substance: ALPRAZOLAM

REACTIONS (4)
  - Intentional overdose [None]
  - Cardiac arrest [None]
  - Completed suicide [Fatal]
  - Respiratory arrest [None]

NARRATIVE: CASE EVENT DATE: 2012
